FAERS Safety Report 7406167-5 (Version None)
Quarter: 2011Q2

REPORT INFORMATION
  Report Type: 
  Country: None (occurrence: None)
  Receive Date: 20110406
  Receipt Date: 20110406
  Transmission Date: 20111010
  Serious: Yes (Other)
  Sender: FDA-Public Use
  Company Number: None

PATIENT
  Sex: Male
  Weight: 83.9154 kg

DRUGS (2)
  1. PERINDOPRIL ERBUMINE [Suspect]
     Indication: HYPERTENSION
     Dosage: 4MG ONE DAILY PO
     Route: 048
     Dates: start: 20110101, end: 20110201
  2. PERINDOPRIL ERBUMINE [Suspect]
     Indication: HYPERTENSION
     Dosage: 4MG ONE DAILY PO
     Route: 048
     Dates: start: 20110202, end: 20110302

REACTIONS (4)
  - HYPERSENSITIVITY [None]
  - NAUSEA [None]
  - HEADACHE [None]
  - DIZZINESS [None]
